FAERS Safety Report 9902597 (Version 2)
Quarter: 2014Q1

REPORT INFORMATION
  Report Type: Spontaneous
  Country: US (occurrence: US)
  Receive Date: 20140217
  Receipt Date: 20140217
  Transmission Date: 20141002
  Serious: No
  Sender: FDA-Public Use
  Company Number: US-GILEAD-2011-0044602

PATIENT
  Sex: Male

DRUGS (4)
  1. LETAIRIS [Suspect]
     Indication: PRODUCT USED FOR UNKNOWN INDICATION
     Dosage: 10 MG, UNK
     Route: 048
     Dates: start: 20101020
  2. REMODULIN [Concomitant]
  3. TYVASO [Concomitant]
  4. REVATIO [Concomitant]

REACTIONS (3)
  - Pain [Recovered/Resolved]
  - Scrotal swelling [Recovered/Resolved]
  - Posture abnormal [Recovered/Resolved]
